FAERS Safety Report 8110315-1 (Version None)
Quarter: 2012Q1

REPORT INFORMATION
  Report Type: 
  Country: None (occurrence: None)
  Receive Date: 20120202
  Receipt Date: 20120123
  Transmission Date: 20120608
  Serious: Yes (Other)
  Sender: FDA-Public Use
  Company Number: JP-ROCHE-1036059

PATIENT
  Age: 36 Year
  Sex: Male

DRUGS (5)
  1. DIAZEPAM [Suspect]
     Indication: PRODUCT USED FOR UNKNOWN INDICATION
  2. ETIZOLAM [Suspect]
     Indication: PRODUCT USED FOR UNKNOWN INDICATION
  3. SULPIRIDE [Suspect]
     Indication: PRODUCT USED FOR UNKNOWN INDICATION
  4. PAROXETINE [Suspect]
     Indication: PRODUCT USED FOR UNKNOWN INDICATION
  5. ALPRAZOLAM [Suspect]
     Indication: PRODUCT USED FOR UNKNOWN INDICATION

REACTIONS (1)
  - BLEPHAROSPASM [None]
